FAERS Safety Report 10033020 (Version 2)
Quarter: 2014Q2

REPORT INFORMATION
  Report Type: Spontaneous
  Country: BR (occurrence: BR)
  Receive Date: 20140324
  Receipt Date: 20140404
  Transmission Date: 20141212
  Serious: Yes (Hospitalization, Other)
  Sender: FDA-Public Use
  Company Number: BR-009507513-1403BRA010940

PATIENT
  Age: 82 Year
  Sex: Female
  Weight: 60 kg

DRUGS (9)
  1. SIMVASTATIN [Suspect]
     Indication: BLOOD CHOLESTEROL INCREASED
     Dosage: 20 MG, TID
     Route: 048
  2. SIMVASTATIN [Suspect]
     Dosage: 40 MG, QD
     Route: 048
  3. JANUMET [Suspect]
     Indication: TYPE 2 DIABETES MELLITUS
     Dosage: 1 DF, QPM
     Route: 048
     Dates: start: 2006
  4. ATENSINA [Concomitant]
     Indication: HYPERTENSION
     Dosage: 200 MG, QPM
  5. AZUKON M [Concomitant]
     Indication: TYPE 2 DIABETES MELLITUS
     Dosage: 60 MG, QD
  6. AMLODIPINE [Concomitant]
     Indication: HYPERTENSION
     Dosage: 10 MG, QD
  7. PURAN T4 [Concomitant]
     Indication: HYPOTHYROIDISM
     Dosage: 75 MICROGRAM, QD
  8. SELO-ZOK [Concomitant]
     Indication: HYPERTENSION
     Dosage: 25 MG, QAM
  9. SELO-ZOK [Concomitant]
     Dosage: 25 MG, QPM

REACTIONS (11)
  - Tachycardia [Recovered/Resolved]
  - Adverse event [Recovered/Resolved]
  - Carotid artery occlusion [Recovered/Resolved]
  - Vertebral artery occlusion [Recovered/Resolved]
  - Arterial stent insertion [Recovered/Resolved]
  - Renal failure [Not Recovered/Not Resolved]
  - Renal impairment [Not Recovered/Not Resolved]
  - Renal atrophy [Not Recovered/Not Resolved]
  - Diarrhoea [Not Recovered/Not Resolved]
  - Blood pressure inadequately controlled [Unknown]
  - Gallbladder disorder [Unknown]
